FAERS Safety Report 9062258 (Version 1)
Quarter: 2013Q1

REPORT INFORMATION
  Report Type: Spontaneous
  Country: US (occurrence: None)
  Receive Date: 20130122
  Receipt Date: 20130122
  Transmission Date: 20140127
  Serious: Yes (Hospitalization, Other)
  Sender: FDA-Public Use
  Company Number: 2013P1000548

PATIENT
  Age: 106 Year
  Sex: Female

DRUGS (1)
  1. LOSARTAN POTASSIUM TABLETS SUSP 25 MG [Suspect]

REACTIONS (3)
  - Renal failure [None]
  - Neck pain [None]
  - Pruritus [None]
